FAERS Safety Report 9177797 (Version 1)
Quarter: 2013Q1

REPORT INFORMATION
  Report Type: Spontaneous
  Country: US (occurrence: US)
  Receive Date: 20130321
  Receipt Date: 20130321
  Transmission Date: 20140127
  Serious: No
  Sender: FDA-Public Use
  Company Number: US-009507513-1303USA010310

PATIENT
  Sex: Female

DRUGS (3)
  1. PROVENTIL [Suspect]
     Indication: BRONCHIOLITIS
     Dosage: INHALE 2 PUFFS BY MOUTH EVERY FOUR HOURS AS NEEDED
     Route: 055
     Dates: start: 20130320
  2. PROVENTIL [Suspect]
     Indication: WHEEZING
  3. PROVENTIL [Suspect]
     Indication: DYSPNOEA

REACTIONS (3)
  - Drug dose omission [Unknown]
  - Product quality issue [Unknown]
  - No adverse event [Unknown]
